FAERS Safety Report 8987165 (Version 1)
Quarter: 2012Q4

REPORT INFORMATION
  Report Type: 
  Country: US (occurrence: US)
  Receive Date: 20121227
  Receipt Date: 20121227
  Transmission Date: 20130627
  Serious: No
  Sender: FDA-Public Use
  Company Number: US-BAYER-2012-134573

PATIENT
  Sex: Female

DRUGS (1)
  1. CLIMARA [Suspect]
     Indication: OSTEOPOROSIS NOS
     Dosage: UNK
     Route: 062
     Dates: start: 2009

REACTIONS (6)
  - Palpitations [None]
  - Night sweats [None]
  - Anxiety [None]
  - Depression [None]
  - Cardiac discomfort [None]
  - Thyroid disorder [None]
